FAERS Safety Report 17484965 (Version 6)
Quarter: 2023Q4

REPORT INFORMATION
  Report Type: Spontaneous
  Country: ES (occurrence: ES)
  Receive Date: 20200302
  Receipt Date: 20231129
  Transmission Date: 20240109
  Serious: Yes (Hospitalization, Other)
  Sender: FDA-Public Use
  Company Number: ES-AUROBINDO-AUR-APL-2020-007042

PATIENT
  Age: 53 Year
  Sex: Female
  Weight: 67 kg

DRUGS (15)
  1. COBICISTAT\DARUNAVIR ETHANOLATE [Interacting]
     Active Substance: COBICISTAT\DARUNAVIR ETHANOLATE
     Indication: HIV infection
     Dosage: 800/150 MG
     Route: 048
     Dates: start: 201804, end: 201809
  2. COBICISTAT\DARUNAVIR ETHANOLATE [Interacting]
     Active Substance: COBICISTAT\DARUNAVIR ETHANOLATE
     Indication: Hepatitis C
     Dosage: 800/150 MG
     Route: 048
     Dates: start: 20180501, end: 20181004
  3. BOSENTAN [Interacting]
     Active Substance: BOSENTAN
     Indication: Pulmonary arterial hypertension
     Dosage: 125 MILLIGRAM, TWO TIMES A DAY (REINTRODUCED DOSE)
     Route: 048
     Dates: start: 20180409, end: 20181008
  4. BOSENTAN [Interacting]
     Active Substance: BOSENTAN
     Route: 048
     Dates: start: 201801
  5. BOSENTAN [Interacting]
     Active Substance: BOSENTAN
     Dosage: 62.5 MG, BID
     Route: 048
     Dates: start: 20180409, end: 20181019
  6. RALTEGRAVIR [Suspect]
     Active Substance: RALTEGRAVIR
     Indication: HIV infection
     Dosage: 400 MG, 2 TIMES A DAY
     Route: 048
     Dates: start: 20180122, end: 20181004
  7. RALTEGRAVIR [Suspect]
     Active Substance: RALTEGRAVIR
     Indication: Hepatitis C
     Dosage: 400 MG, 2 TIMES A DAY
     Route: 048
  8. LOPINAVIR\RITONAVIR [Suspect]
     Active Substance: LOPINAVIR\RITONAVIR
     Indication: HIV infection
     Dosage: 400/100 MG
     Route: 065
     Dates: start: 201801
  9. PIBRENTASVIR [Suspect]
     Active Substance: PIBRENTASVIR
     Indication: Hepatitis C
     Route: 065
     Dates: start: 201801
  10. RILPIVIRINE [Suspect]
     Active Substance: RILPIVIRINE
     Indication: HIV infection
     Route: 065
     Dates: start: 201801, end: 201804
  11. TADALAFIL [Suspect]
     Active Substance: TADALAFIL
     Indication: Pulmonary arterial hypertension
     Dosage: 20 MILLIGRAM, ONCE A DAY
     Route: 065
     Dates: start: 201801
  12. TADALAFIL [Suspect]
     Active Substance: TADALAFIL
     Dosage: 20 MILLIGRAM, ONCE A DAY (REINTRODUCED DOSE)
     Route: 065
     Dates: start: 201804
  13. GLECAPREVIR [Suspect]
     Active Substance: GLECAPREVIR
     Indication: Hepatitis C
     Route: 065
     Dates: start: 201801
  14. ETRAVIRINE [Concomitant]
     Active Substance: ETRAVIRINE
     Route: 065
  15. DOLUTEGRAVIR [Concomitant]
     Active Substance: DOLUTEGRAVIR
     Route: 065

REACTIONS (9)
  - Cardiac failure congestive [Recovering/Resolving]
  - Cardiac failure [Recovering/Resolving]
  - Respiratory failure [Recovering/Resolving]
  - Blood HIV RNA increased [Recovering/Resolving]
  - Virologic failure [Recovering/Resolving]
  - Fluid retention [Recovering/Resolving]
  - Toxicity to various agents [Recovering/Resolving]
  - Drug interaction [Recovering/Resolving]
  - Drug resistance [Recovering/Resolving]

NARRATIVE: CASE EVENT DATE: 20180101
